FAERS Safety Report 10675232 (Version 1)
Quarter: 2014Q4

REPORT INFORMATION
  Report Type: Spontaneous
  Country: CH (occurrence: CH)
  Receive Date: 20141224
  Receipt Date: 20141224
  Transmission Date: 20150529
  Serious: Yes (Hospitalization)
  Sender: FDA-Public Use
  Company Number: CH-ASTRAZENECA-2014SE97017

PATIENT
  Age: 26414 Day
  Sex: Male

DRUGS (9)
  1. ASPIRIN CARDIO [Concomitant]
     Active Substance: ASPIRIN
  2. ZESTRIL [Suspect]
     Active Substance: LISINOPRIL
     Indication: HYPERTENSION
     Route: 048
     Dates: start: 2014
  3. SERESTA [Concomitant]
     Active Substance: OXAZEPAM
  4. PANTOZOL [Concomitant]
     Active Substance: PANTOPRAZOLE SODIUM
  5. ALDACTONE [Interacting]
     Active Substance: SPIRONOLACTONE
     Indication: HYPERTENSION
     Route: 048
     Dates: start: 2014
  6. BECOZYM [Concomitant]
     Active Substance: VITAMINS
  7. KEPPRA [Concomitant]
     Active Substance: LEVETIRACETAM
  8. ATORVASTATIN [Concomitant]
     Active Substance: ATORVASTATIN
  9. BENERVA [Concomitant]
     Active Substance: THIAMINE

REACTIONS (7)
  - Diarrhoea [Unknown]
  - Drug interaction [Unknown]
  - Acute kidney injury [Recovered/Resolved]
  - Hyperkalaemia [Recovered/Resolved]
  - Metabolic acidosis [Recovered/Resolved]
  - Fatigue [Unknown]
  - Asthenia [Unknown]

NARRATIVE: CASE EVENT DATE: 20140910
